FAERS Safety Report 21047070 (Version 1)
Quarter: 2022Q3

REPORT INFORMATION
  Report Type: Spontaneous
  Country: US (occurrence: None)
  Receive Date: 20220705
  Receipt Date: 20220705
  Transmission Date: 20221026
  Serious: Yes (unspecified)
  Sender: FDA-Public Use
  Company Number: None

PATIENT
  Age: 53 Year
  Sex: Female
  Weight: 87.3 kg

DRUGS (9)
  1. PAXLOVID [Suspect]
     Active Substance: NIRMATRELVIR\RITONAVIR
     Indication: COVID-19
     Dosage: OTHER QUANTITY : 30 TABLET(S);?FREQUENCY : TWICE A DAY;?
     Route: 048
     Dates: start: 20220627, end: 20220630
  2. ALLEGRA [Concomitant]
     Active Substance: FEXOFENADINE HYDROCHLORIDE
  3. VITAMINS [Concomitant]
     Active Substance: VITAMINS
  4. VITAMIN B COMPLEX [Concomitant]
     Active Substance: CYANOCOBALAMIN\DEXPANTHENOL\NIACINAMIDE\PYRIDOXINE HYDROCHLORIDE\RIBOFLAVIN 5^-PHOSPHATE SODIUM\THIA
  5. C [Concomitant]
  6. D [Concomitant]
  7. ZINC [Concomitant]
     Active Substance: ZINC
  8. FISH OIL [Concomitant]
  9. PROBIOTIC [Concomitant]

REACTIONS (7)
  - Taste disorder [None]
  - Dyspepsia [None]
  - Gastrooesophageal reflux disease [None]
  - Diarrhoea [None]
  - Vomiting [None]
  - Dyspepsia [None]
  - COVID-19 [None]

NARRATIVE: CASE EVENT DATE: 20220630
